FAERS Safety Report 12365702 (Version 1)
Quarter: 2016Q2

REPORT INFORMATION
  Report Type: Spontaneous
  Country: FR (occurrence: FR)
  Receive Date: 20160513
  Receipt Date: 20160513
  Transmission Date: 20160815
  Serious: Yes (Hospitalization)
  Sender: FDA-Public Use
  Company Number: FR-GLAXOSMITHKLINE-FR2016GSK067522

PATIENT
  Age: 14 Year
  Sex: Female

DRUGS (7)
  1. HUMIRA [Suspect]
     Active Substance: ADALIMUMAB
     Indication: PSORIATIC ARTHROPATHY
     Dosage: 80 MG, CYC
     Route: 058
     Dates: start: 20160304, end: 20160401
  2. ATARAX [Concomitant]
     Active Substance: HYDROXYZINE\HYDROXYZINE HYDROCHLORIDE
  3. DOLIPRANE [Concomitant]
     Active Substance: ACETAMINOPHEN
  4. OGASTORO [Concomitant]
     Active Substance: LANSOPRAZOLE
  5. DAFALGAN CODEINE [Concomitant]
     Active Substance: ACETAMINOPHEN\CODEINE PHOSPHATE
  6. SEROPLEX [Concomitant]
     Active Substance: ESCITALOPRAM OXALATE
  7. VOLTARENE [Suspect]
     Active Substance: DICLOFENAC SODIUM
     Indication: PSORIATIC ARTHROPATHY
     Dosage: 75 MG, BID
     Dates: end: 20160420

REACTIONS (3)
  - Asthenia [Recovering/Resolving]
  - Haematuria [Recovered/Resolved]
  - Dysuria [Not Recovered/Not Resolved]

NARRATIVE: CASE EVENT DATE: 20160420
